FAERS Safety Report 10921293 (Version 1)
Quarter: 2015Q1

REPORT INFORMATION
  Report Type: Spontaneous
  Country: ES (occurrence: None)
  Receive Date: 20150312
  Receipt Date: 20150312
  Transmission Date: 20150721
  Serious: Yes (Other)
  Sender: FDA-Public Use
  Company Number: 2270718

PATIENT
  Age: 60 Year
  Sex: Female

DRUGS (5)
  1. 5-FLUOROURACIL [Suspect]
     Active Substance: FLUOROURACIL
     Indication: RECTAL ADENOCARCINOMA
     Dosage: IC, D TO D2, C2S, CYCLICAL
     Dates: start: 2009
  2. RALTITREXED DISODIUM [Suspect]
     Active Substance: RALTITREXED
     Indication: RECTAL ADENOCARCINOMA
     Dosage: CYCLICAL
     Dates: start: 2012
  3. CAPECITABINE. [Suspect]
     Active Substance: CAPECITABINE
     Dosage: 12H, D1 TO D5, C1S, CYCLICAL
     Dates: start: 2009
  4. ENALAPRIL [Concomitant]
     Active Substance: ENALAPRIL
  5. OXALIPLATIN. [Suspect]
     Active Substance: OXALIPLATIN
     Indication: RECTAL ADENOCARCINOMA
     Dosage: 24 H, D1, C2S CYCLICAL
     Dates: start: 2009

REACTIONS (9)
  - Decreased appetite [None]
  - Neutropenia [None]
  - Nausea [None]
  - Vomiting [None]
  - Anaemia [None]
  - Diarrhoea [None]
  - Constipation [None]
  - Asthenia [None]
  - Mucosal inflammation [None]

NARRATIVE: CASE EVENT DATE: 2011
